FAERS Safety Report 7315639-3 (Version None)
Quarter: 2011Q1

REPORT INFORMATION
  Report Type: 
  Country: None (occurrence: None)
  Receive Date: 20110225
  Receipt Date: 20110214
  Transmission Date: 20110831
  Serious: Yes (Other)
  Sender: FDA-Public Use
  Company Number: PHHY2011GB11527

PATIENT
  Age: 72 Year
  Sex: Male

DRUGS (2)
  1. ITRACONAZOLE [Suspect]
  2. VFEND [Suspect]
     Dosage: 200 MG, UNK

REACTIONS (3)
  - HALLUCINATION [None]
  - AGITATION [None]
  - FUNGAL INFECTION [None]
